FAERS Safety Report 24104069 (Version 2)
Quarter: 2024Q3

REPORT INFORMATION
  Report Type: Spontaneous
  Country: GB (occurrence: GB)
  Receive Date: 20240717
  Receipt Date: 20240727
  Transmission Date: 20241017
  Serious: Yes (Other)
  Sender: ACCORD
  Company Number: GB-MLMSERVICE-20240701-PI114030-00138-1

PATIENT
  Age: 5 Decade
  Sex: Female

DRUGS (3)
  1. PROGESTERONE [Suspect]
     Active Substance: PROGESTERONE
     Indication: Radiation menopause
     Dosage: NIGHTLY
     Route: 048
  2. ESTRADIOL [Suspect]
     Active Substance: ESTRADIOL
     Indication: Radiation menopause
     Dosage: 50 MCG TWICE WEEKLY
     Route: 062
  3. ESTRADIOL [Suspect]
     Active Substance: ESTRADIOL
     Indication: Radiation menopause
     Route: 062

REACTIONS (1)
  - Uterine haemorrhage [Recovering/Resolving]
